FAERS Safety Report 7808107-3 (Version None)
Quarter: 2011Q4

REPORT INFORMATION
  Report Type: 
  Country: None (occurrence: None)
  Receive Date: 20111011
  Receipt Date: 20110928
  Transmission Date: 20120403
  Serious: No
  Sender: FDA-Public Use
  Company Number: US-B.I. PHARMACEUTICALS,INC./RIDGEFIELD-2011-BP-19866BP

PATIENT
  Age: 71 Year
  Sex: Male
  Weight: 104.33 kg

DRUGS (8)
  1. SPIRIVA [Suspect]
     Indication: CHRONIC OBSTRUCTIVE PULMONARY DISEASE
     Dosage: 18 MCG
     Route: 055
     Dates: start: 20071201
  2. K-TAB [Concomitant]
     Indication: VITAMIN SUPPLEMENTATION
     Route: 048
  3. HYDROCHLOROTHIAZIDE [Concomitant]
     Indication: HYPERTENSION
     Route: 048
  4. DILTIAZEM HCL [Concomitant]
     Indication: ATRIAL FIBRILLATION
     Route: 048
  5. PROAIR HFA [Concomitant]
     Indication: CHRONIC OBSTRUCTIVE PULMONARY DISEASE
     Route: 055
  6. ADVAIR DISKUS 100/50 [Concomitant]
     Indication: CHRONIC OBSTRUCTIVE PULMONARY DISEASE
     Route: 055
  7. ASPIRIN [Concomitant]
     Indication: PROPHYLAXIS
     Dosage: 81 MG
     Route: 048
  8. TERAZOSIN HCL [Concomitant]
     Indication: DYSURIA
     Route: 048

REACTIONS (5)
  - MYALGIA [None]
  - UPPER RESPIRATORY TRACT IRRITATION [None]
  - SENSATION OF FOREIGN BODY [None]
  - COUGH [None]
  - DYSPNOEA [None]
